FAERS Safety Report 12340620 (Version 1)
Quarter: 2016Q2

REPORT INFORMATION
  Report Type: Spontaneous
  Country: US (occurrence: US)
  Receive Date: 20160506
  Receipt Date: 20160506
  Transmission Date: 20160815
  Serious: No
  Sender: FDA-Public Use
  Company Number: US-BAYER-2016-087566

PATIENT
  Age: 45 Year
  Sex: Female
  Weight: 68.27 kg

DRUGS (1)
  1. ALEVE [Suspect]
     Active Substance: NAPROXEN SODIUM
     Indication: ANALGESIC THERAPY
     Dosage: 2 DF, 5 DAYS A WEEK

REACTIONS (3)
  - Headache [None]
  - Headache [None]
  - Product use issue [None]

NARRATIVE: CASE EVENT DATE: 20160501
